FAERS Safety Report 9104924 (Version 1)
Quarter: 2013Q1

REPORT INFORMATION
  Report Type: Spontaneous
  Country: US (occurrence: US)
  Receive Date: 20130220
  Receipt Date: 20130220
  Transmission Date: 20140127
  Serious: No
  Sender: FDA-Public Use
  Company Number: US-009507513-1302USA008685

PATIENT
  Sex: 0

DRUGS (2)
  1. EMEND [Suspect]
     Route: 042
  2. GLUTATHIONE [Concomitant]

REACTIONS (2)
  - Injection site reaction [Unknown]
  - Adverse drug reaction [Unknown]
